FAERS Safety Report 9089843 (Version 7)
Quarter: 2014Q1

REPORT INFORMATION
  Report Type: Spontaneous
  Country: US (occurrence: US)
  Receive Date: 20130201
  Receipt Date: 20140213
  Transmission Date: 20141002
  Serious: Yes (Death, Hospitalization, Disabling, Other)
  Sender: FDA-Public Use
  Company Number: US-009507513-1205USA00040

PATIENT
  Sex: Female
  Weight: 108.84 kg

DRUGS (5)
  1. FOSAMAX [Suspect]
     Indication: OSTEOARTHRITIS
     Dosage: 70 MG, QW
     Route: 048
     Dates: start: 2003, end: 201307
  2. FOSAMAX [Suspect]
     Indication: OSTEOPOROSIS POSTMENOPAUSAL
  3. FOSAMAX PLUS D [Suspect]
     Indication: OSTEOARTHRITIS
     Dosage: 70MG/2800, QW
     Route: 048
     Dates: end: 201307
  4. FOSAMAX [Suspect]
     Indication: OSTEOPOROSIS POSTMENOPAUSAL
     Route: 048
  5. FOSAMAX [Suspect]
     Indication: OSTEOPOROSIS PROPHYLAXIS

REACTIONS (40)
  - Femur fracture [Recovered/Resolved]
  - Femur fracture [Unknown]
  - Anaemia [Unknown]
  - Fall [Unknown]
  - Scapula fracture [Unknown]
  - Fall [Unknown]
  - Spinal compression fracture [Unknown]
  - Cerebrovascular accident [Not Recovered/Not Resolved]
  - Hemiparesis [Not Recovered/Not Resolved]
  - Cardiomyopathy [Unknown]
  - Cardiac failure congestive [Unknown]
  - Cerebrovascular accident [Unknown]
  - Fall [Unknown]
  - Urinary tract infection [Unknown]
  - Anaemia [Not Recovered/Not Resolved]
  - Carotid endarterectomy [Unknown]
  - Cerebrovascular accident [Unknown]
  - Death [Fatal]
  - Fractured coccyx [Unknown]
  - Vitamin D deficiency [Unknown]
  - Calcium deficiency [Unknown]
  - Type 2 diabetes mellitus [Unknown]
  - Dermatitis [Unknown]
  - Cerebrovascular disorder [Not Recovered/Not Resolved]
  - Fall [Unknown]
  - Hyponatraemia [Unknown]
  - Hypothyroidism [Not Recovered/Not Resolved]
  - Intervertebral disc degeneration [Not Recovered/Not Resolved]
  - Spinal column stenosis [Not Recovered/Not Resolved]
  - Spondylolisthesis [Not Recovered/Not Resolved]
  - Diabetic neuropathy [Unknown]
  - Osteoporosis [Unknown]
  - Stress fracture [Unknown]
  - Low turnover osteopathy [Unknown]
  - Fibula fracture [Unknown]
  - Flushing [Unknown]
  - Osteoarthritis [Unknown]
  - Hyperkeratosis [Unknown]
  - Oedema peripheral [Unknown]
  - Inappropriate schedule of drug administration [Unknown]
